FAERS Safety Report 24098449 (Version 3)
Quarter: 2024Q4

REPORT INFORMATION
  Report Type: Spontaneous
  Country: JP (occurrence: JP)
  Receive Date: 20240716
  Receipt Date: 20241014
  Transmission Date: 20250114
  Serious: Yes (Other)
  Sender: BRISTOL-MYERS SQUIBB COMPANY
  Company Number: JP-ONO-2024JP014689

PATIENT
  Age: 68 Year
  Sex: Male
  Weight: 61 kg

DRUGS (13)
  1. OPDIVO [Suspect]
     Active Substance: NIVOLUMAB
     Indication: Oesophageal carcinoma
     Route: 041
     Dates: start: 20240126, end: 20240524
  2. OPDIVO [Suspect]
     Active Substance: NIVOLUMAB
     Route: 041
     Dates: start: 20240620, end: 20240620
  3. WARFARIN POTASSIUM [Suspect]
     Active Substance: WARFARIN POTASSIUM
     Indication: Deep vein thrombosis
  4. CALONAL [Concomitant]
     Active Substance: ACETAMINOPHEN
     Indication: Product used for unknown indication
     Dosage: 400 MG, Q6H
     Route: 048
  5. MOSAPRIDE CITRATE [Concomitant]
     Active Substance: MOSAPRIDE CITRATE
     Indication: Product used for unknown indication
     Dosage: 5 MG, Q8H
     Route: 048
  6. PROCHLORPERAZINE DIMETHANESULFONATE [Concomitant]
     Active Substance: PROCHLORPERAZINE DIMETHANESULFONATE
     Indication: Product used for unknown indication
     Dosage: 5 MG, Q12H
     Route: 048
  7. METOCLOPRAMIDE [Concomitant]
     Active Substance: METOCLOPRAMIDE
     Indication: Nausea
     Dosage: 5 MG, PRN
     Route: 048
  8. OXYCODONE [Concomitant]
     Active Substance: OXYCODONE
     Indication: Cancer pain
     Dosage: 10 MG, Q12H; SLOW-RELEASE TABLET
     Route: 048
  9. OXYCODONE [Concomitant]
     Active Substance: OXYCODONE
     Indication: Procedural pain
     Dosage: SLOW-RELEASE TABLET
  10. OXINORM [ORGOTEIN] [Concomitant]
     Indication: Pain
     Dosage: 5 MG, PRN
     Route: 048
  11. IRBESARTAN [Concomitant]
     Active Substance: IRBESARTAN
     Indication: Product used for unknown indication
     Dosage: 100 MG, Q12H
     Route: 048
  12. PITAVASTATIN CALCIUM [Concomitant]
     Active Substance: PITAVASTATIN CALCIUM
     Indication: Product used for unknown indication
     Dosage: 2 MG, EVERYDAY; TABLET, ORALLY DISINTEGRATING
     Route: 048
  13. POLAPREZINC [Concomitant]
     Active Substance: POLAPREZINC
     Indication: Product used for unknown indication
     Dosage: 75 MG, Q12H; TABLET, ORALLY DISINTEGRATING
     Route: 048

REACTIONS (3)
  - Myelosuppression [Unknown]
  - Deep vein thrombosis [Unknown]
  - Anaemia [Unknown]

NARRATIVE: CASE EVENT DATE: 20240415
